FAERS Safety Report 5109109-0 (Version None)
Quarter: 2006Q3

REPORT INFORMATION
  Report Type: 
  Country: None (occurrence: None)
  Receive Date: 20060731
  Receipt Date: 20060507
  Transmission Date: 20061208
  Serious: No
  Sender: FDA-Public Use
  Company Number: 2006PV013386

PATIENT
  Age: 52 Year
  Sex: Male
  Weight: 133.8111 kg

DRUGS (5)
  1. BYETTA [Suspect]
     Indication: DIABETES MELLITUS NON-INSULIN-DEPENDENT
     Dosage: SEE IMAGE
     Route: 058
     Dates: start: 20060301, end: 20060331
  2. BYETTA [Suspect]
     Indication: DIABETES MELLITUS NON-INSULIN-DEPENDENT
     Dosage: SEE IMAGE
     Route: 058
     Dates: start: 20060401
  3. GLUCOPHAGE [Suspect]
     Dosage: PO
     Route: 048
     Dates: start: 20060401
  4. AMARYL [Concomitant]
  5. ACTOS /USA/ [Concomitant]

REACTIONS (4)
  - BLOOD GLUCOSE INCREASED [None]
  - DIARRHOEA [None]
  - INJECTION SITE IRRITATION [None]
  - INJECTION SITE PAIN [None]
